FAERS Safety Report 6404384-4 (Version None)
Quarter: 2009Q4

REPORT INFORMATION
  Report Type: 
  Country: None (occurrence: None)
  Receive Date: 20091016
  Receipt Date: 20091007
  Transmission Date: 20100525
  Serious: Yes (Hospitalization)
  Sender: FDA-Public Use
  Company Number: US-ABBOTT-09P-163-0601757-00

PATIENT
  Sex: Female
  Weight: 70.37 kg

DRUGS (4)
  1. SYNTHROID [Suspect]
     Indication: HYPOTHYROIDISM
     Dates: start: 19910101, end: 20090930
  2. SYNTHROID [Suspect]
     Dates: start: 20090930
  3. ZOLOFT [Concomitant]
     Indication: ANXIETY
  4. LIPITOR [Concomitant]
     Indication: BLOOD CHOLESTEROL INCREASED

REACTIONS (4)
  - BRADYCARDIA [None]
  - CARDIAC FLUTTER [None]
  - HEART RATE DECREASED [None]
  - THYROID FUNCTION TEST ABNORMAL [None]
